FAERS Safety Report 23461926 (Version 8)
Quarter: 2025Q1

REPORT INFORMATION
  Report Type: Report from Study
  Country: US (occurrence: US)
  Receive Date: 20240131
  Receipt Date: 20250321
  Transmission Date: 20250409
  Serious: Yes (Hospitalization)
  Sender: TAKEDA
  Company Number: US-TAKEDA-2024TUS001830

PATIENT
  Age: 58 Year
  Sex: Female

DRUGS (4)
  1. TEDUGLUTIDE [Suspect]
     Active Substance: TEDUGLUTIDE
     Indication: Short-bowel syndrome
     Dosage: 0.22 MILLILITER, QD
     Dates: start: 202312
  2. TEDUGLUTIDE [Suspect]
     Active Substance: TEDUGLUTIDE
  3. TEDUGLUTIDE [Suspect]
     Active Substance: TEDUGLUTIDE
     Dosage: 0.22 MILLILITER, QD
  4. TEDUGLUTIDE [Suspect]
     Active Substance: TEDUGLUTIDE
     Dosage: 0.27 MILLILITER, QD

REACTIONS (18)
  - Localised infection [Unknown]
  - Blood glucose abnormal [Unknown]
  - Fall [Unknown]
  - Skin laceration [Unknown]
  - Peripheral swelling [Unknown]
  - Stoma site discharge [Unknown]
  - Eating disorder [Unknown]
  - Incorrect route of product administration [Unknown]
  - Migraine [Recovering/Resolving]
  - Infusion site pain [Unknown]
  - Inappropriate schedule of product administration [Unknown]
  - Malaise [Unknown]
  - Weight decreased [Unknown]
  - Dry skin [Unknown]
  - Skin exfoliation [Unknown]
  - Headache [Unknown]
  - Abdominal pain upper [Unknown]
  - Nausea [Recovering/Resolving]

NARRATIVE: CASE EVENT DATE: 20240103
